FAERS Safety Report 8003603-0 (Version None)
Quarter: 2011Q4

REPORT INFORMATION
  Report Type: 
  Country: None (occurrence: None)
  Receive Date: 20111222
  Receipt Date: 20111216
  Transmission Date: 20120403
  Serious: No
  Sender: FDA-Public Use
  Company Number: US-B.I. PHARMACEUTICALS,INC./RIDGEFIELD-2011-BP-28263BP

PATIENT
  Sex: Male

DRUGS (8)
  1. METOPROLOL TARTRATE [Concomitant]
  2. ASPIRIN [Concomitant]
     Indication: PROPHYLAXIS
     Dosage: 81 MG
     Route: 048
  3. LOTREL [Concomitant]
  4. MICARDIS HCT [Suspect]
     Indication: HYPERTENSION
     Route: 048
  5. VOLTARAN SUPPOSITORY [Concomitant]
     Indication: ARTHRITIS
     Route: 054
  6. CRESTOR [Concomitant]
  7. NEXIUM [Concomitant]
     Route: 048
  8. ACETAMINOPHEN [Concomitant]
     Indication: ARTHRITIS

REACTIONS (2)
  - MYALGIA [None]
  - VISION BLURRED [None]
